FAERS Safety Report 18761579 (Version 2)
Quarter: 2021Q1

REPORT INFORMATION
  Report Type: Spontaneous
  Country: US (occurrence: US)
  Receive Date: 20210120
  Receipt Date: 20210312
  Transmission Date: 20210419
  Serious: Yes (Hospitalization, Other)
  Sender: FDA-Public Use
  Company Number: US-DRREDDYS-USA/USA/21/0131084

PATIENT
  Age: 77 Year
  Sex: Male

DRUGS (1)
  1. DIPHENHYDRAMINE HYDROCHLORIDE. [Suspect]
     Active Substance: DIPHENHYDRAMINE HYDROCHLORIDE
     Indication: INSOMNIA
     Dosage: 250MG?750MG NIGHTLY

REACTIONS (3)
  - Intentional product misuse [Unknown]
  - Dementia [Unknown]
  - Urinary retention [Recovered/Resolved]
